FAERS Safety Report 6393626-X (Version None)
Quarter: 2009Q4

REPORT INFORMATION
  Report Type: 
  Country: None (occurrence: None)
  Receive Date: 20091008
  Receipt Date: 20090924
  Transmission Date: 20100525
  Serious: Yes (Other)
  Sender: FDA-Public Use
  Company Number: BR-PFIZER INC-2009273476

PATIENT
  Age: 24 Year

DRUGS (2)
  1. FIBRASE [Suspect]
     Indication: WOUND TREATMENT
     Dosage: UNK
     Route: 003
     Dates: start: 20080901
  2. SELENE (ETHINYLESTRADIOL CYPROTERONE ACETATE) [Concomitant]
     Indication: CONTRACEPTION
     Dosage: UNK

REACTIONS (6)
  - BREAST DISORDER [None]
  - ERYTHEMA [None]
  - HYPERSENSITIVITY [None]
  - INCISION SITE COMPLICATION [None]
  - INFECTION [None]
  - VASCULITIS [None]
